FAERS Safety Report 5959335-3 (Version None)
Quarter: 2008Q4

REPORT INFORMATION
  Report Type: 
  Country: None (occurrence: None)
  Receive Date: 20081117
  Receipt Date: 20081107
  Transmission Date: 20090506
  Serious: Yes (Death, Hospitalization)
  Sender: FDA-Public Use
  Company Number: 2008SP021938

PATIENT
  Age: 72 Year
  Sex: Female
  Weight: 95 kg

DRUGS (11)
  1. TEMODAL [Suspect]
     Indication: GLIOBLASTOMA
     Dosage: 100 MG/M2; ; PO
     Route: 048
     Dates: start: 20080710
  2. ASPIRIN [Concomitant]
  3. KEVATRIL [Concomitant]
  4. LACTULOSE [Concomitant]
  5. MARCUMAR [Concomitant]
  6. METOCLOPRAMID [Concomitant]
  7. EMBOLEX [Concomitant]
  8. MOVICOL [Concomitant]
  9. NEXIUM [Concomitant]
  10. ROCEPHIN [Concomitant]
  11. VERAPAMIL [Concomitant]

REACTIONS (1)
  - CONVULSION [None]
